FAERS Safety Report 9391158 (Version 1)
Quarter: 2013Q3

REPORT INFORMATION
  Report Type: Spontaneous
  Country: NL (occurrence: NL)
  Receive Date: 20130709
  Receipt Date: 20130709
  Transmission Date: 20140515
  Serious: Yes (Hospitalization, Other)
  Sender: FDA-Public Use
  Company Number: NL-JNJFOC-20130700748

PATIENT
  Sex: 0

DRUGS (4)
  1. INFLIXIMAB, RECOMBINANT [Suspect]
     Indication: CROHN^S DISEASE
     Route: 042
  2. INFLIXIMAB, RECOMBINANT [Suspect]
     Indication: CROHN^S DISEASE
     Dosage: 31 PERCENT OF PATIENTS
     Route: 042
  3. INFLIXIMAB, RECOMBINANT [Suspect]
     Indication: CROHN^S DISEASE
     Dosage: 90 PERCENT OF PATIENTS
     Route: 042
  4. AZATHIOPRINE [Concomitant]
     Route: 065

REACTIONS (15)
  - Infusion related reaction [Unknown]
  - Condition aggravated [Unknown]
  - Therapeutic response decreased [Unknown]
  - Adverse drug reaction [Unknown]
  - Hospitalisation [Unknown]
  - Surgery [Unknown]
  - Drug dependence [Unknown]
  - Epstein-Barr virus infection [Unknown]
  - Herpes simplex [Unknown]
  - Herpes zoster [Unknown]
  - Opportunistic infection [Unknown]
  - Myalgia [Unknown]
  - Musculoskeletal disorder [Unknown]
  - Arthropathy [Unknown]
  - Skin disorder [Unknown]
